FAERS Safety Report 12079101 (Version 1)
Quarter: 2016Q1

REPORT INFORMATION
  Report Type: Other
  Country: ES (occurrence: ES)
  Receive Date: 20160216
  Receipt Date: 20160216
  Transmission Date: 20160526
  Serious: Yes (Other)
  Sender: FDA-Public Use
  Company Number: ES-ASTELLAS-2016US004906

PATIENT
  Age: 70 Year
  Sex: Female

DRUGS (1)
  1. BETMIGA [Suspect]
     Active Substance: MIRABEGRON
     Indication: URINARY INCONTINENCE
     Route: 048
     Dates: start: 20150703, end: 201509

REACTIONS (2)
  - Sinus tachycardia [Unknown]
  - Hypertensive crisis [Unknown]

NARRATIVE: CASE EVENT DATE: 201509
